FAERS Safety Report 8882365 (Version 1)
Quarter: 2012Q4

REPORT INFORMATION
  Report Type: 
  Country: US (occurrence: US)
  Receive Date: 20121102
  Receipt Date: 20121102
  Transmission Date: 20130627
  Serious: No
  Sender: FDA-Public Use
  Company Number: US-ASTRAZENECA-2012SE81564

PATIENT
  Age: 65 Year
  Sex: Female
  Weight: 83.9 kg

DRUGS (4)
  1. CRESTOR [Suspect]
     Route: 048
  2. ATENOLOL [Suspect]
     Route: 048
  3. EXFORGE [Concomitant]
  4. LORPASE [Concomitant]
     Indication: CARDIOMYOPATHY

REACTIONS (5)
  - Vision blurred [Unknown]
  - Dyspnoea [Unknown]
  - Depression [Unknown]
  - Dizziness [Unknown]
  - Lethargy [Unknown]
